FAERS Safety Report 8431096-8 (Version None)
Quarter: 2012Q2

REPORT INFORMATION
  Report Type: 
  Country: None (occurrence: None)
  Receive Date: 20120612
  Receipt Date: 20111116
  Transmission Date: 20120825
  Serious: No
  Sender: FDA-Public Use
  Company Number: US-ASTRAZENECA-2011SE09294

PATIENT
  Age: 69 Year
  Sex: Female
  Weight: 72.6 kg

DRUGS (1)
  1. PULMICORT FLEXHALER [Suspect]
     Indication: ASTHMA
     Dosage: 180 MCG BID
     Route: 055
     Dates: start: 20110120

REACTIONS (3)
  - DRUG DOSE OMISSION [None]
  - COUGH [None]
  - INCORRECT DOSE ADMINISTERED [None]
